FAERS Safety Report 16639296 (Version 1)
Quarter: 2019Q3

REPORT INFORMATION
  Report Type: Spontaneous
  Country: CA (occurrence: CA)
  Receive Date: 20190726
  Receipt Date: 20190726
  Transmission Date: 20191004
  Serious: Yes (Hospitalization)
  Sender: FDA-Public Use
  Company Number: CA-TEVA-2019-CA-1082906

PATIENT
  Age: 57 Year
  Sex: Female

DRUGS (15)
  1. CORGARD [Concomitant]
     Active Substance: NADOLOL
  2. SENNOSIDES. [Concomitant]
     Active Substance: SENNOSIDES
  3. CALCIUM CARBONATE. [Concomitant]
     Active Substance: CALCIUM CARBONATE
  4. DULOXETINE. [Concomitant]
     Active Substance: DULOXETINE
  5. VITAMIN D [Concomitant]
     Active Substance: VITAMIN D NOS
  6. ACETYLSALICYLIC ACID [Concomitant]
     Active Substance: ASPIRIN
  7. MULTIVITAMINE(S) [Concomitant]
     Active Substance: VITAMINS
  8. RABEPRAZOLE [Concomitant]
     Active Substance: RABEPRAZOLE
  9. ALENDRONATE [Suspect]
     Active Substance: ALENDRONATE SODIUM
     Indication: OSTEOPOROSIS
     Route: 048
  10. ANUSOL HC [Concomitant]
     Active Substance: HYDROCORTISONE
  11. GLICLAZIDE [Concomitant]
     Active Substance: GLICLAZIDE
  12. ALBUTEROL. [Concomitant]
     Active Substance: ALBUTEROL
  13. IRON [Concomitant]
     Active Substance: IRON
  14. METFORMIN [Concomitant]
     Active Substance: METFORMIN HYDROCHLORIDE
  15. PREDNISONE. [Concomitant]
     Active Substance: PREDNISONE

REACTIONS (4)
  - Atypical femur fracture [Unknown]
  - Humerus fracture [Unknown]
  - Intramedullary rod insertion [Unknown]
  - Open reduction of fracture [Unknown]
